FAERS Safety Report 7890286-3 (Version None)
Quarter: 2011Q4

REPORT INFORMATION
  Report Type: 
  Country: None (occurrence: None)
  Receive Date: 20111103
  Receipt Date: 20110805
  Transmission Date: 20120403
  Serious: No
  Sender: FDA-Public Use
  Company Number: US-AMGEN-USASP2011039877

PATIENT
  Age: 68 Year

DRUGS (16)
  1. ACTONEL [Concomitant]
  2. PRILOSEC [Concomitant]
  3. MULTIVITAMIN                       /00097801/ [Concomitant]
  4. LASIX [Concomitant]
  5. PREDNISONE [Concomitant]
  6. LISINOPRIL [Concomitant]
  7. TOPROL-XL [Concomitant]
  8. SYNTHROID [Concomitant]
  9. ARAVA [Concomitant]
  10. FLUCONAZOLE [Concomitant]
  11. DOXYCYCLINE [Concomitant]
  12. OSCAL 500 + D [Concomitant]
  13. ENBREL [Suspect]
     Indication: PRODUCT USED FOR UNKNOWN INDICATION
     Dosage: 50 MG, QWK
  14. CRESTOR [Concomitant]
  15. IRON                               /00023503/ [Concomitant]
  16. BACTRIM [Concomitant]

REACTIONS (2)
  - RASH PRURITIC [None]
  - SKIN INDURATION [None]
